FAERS Safety Report 19715569 (Version 1)
Quarter: 2021Q3

REPORT INFORMATION
  Report Type: Spontaneous
  Country: FR (occurrence: FR)
  Receive Date: 20210818
  Receipt Date: 20210818
  Transmission Date: 20211014
  Serious: Yes (Hospitalization)
  Sender: FDA-Public Use
  Company Number: FR-MYLANLABS-2021M1048995

PATIENT
  Age: 57 Year
  Sex: Male
  Weight: 83 kg

DRUGS (4)
  1. PROPOFOL. [Suspect]
     Active Substance: PROPOFOL
     Indication: GENERAL ANAESTHESIA
     Dosage: 564 MILLIGRAM
     Route: 042
     Dates: start: 20210122
  2. KETAMINE [Suspect]
     Active Substance: KETAMINE
     Indication: GENERAL ANAESTHESIA
     Dosage: 10 MILLIGRAM
     Route: 042
     Dates: start: 20210122
  3. NEFOPAM [Suspect]
     Active Substance: NEFOPAM
     Indication: GENERAL ANAESTHESIA
     Dosage: 10 MILLIGRAM
     Route: 042
     Dates: start: 20210122
  4. REMIFENTANIL [Suspect]
     Active Substance: REMIFENTANIL
     Indication: GENERAL ANAESTHESIA
     Dosage: 310 MICROGRAM
     Route: 042
     Dates: start: 20210122

REACTIONS (1)
  - Pancreatitis acute [Recovered/Resolved]

NARRATIVE: CASE EVENT DATE: 20210124
